FAERS Safety Report 21491473 (Version 3)
Quarter: 2022Q4

REPORT INFORMATION
  Report Type: Spontaneous
  Country: US (occurrence: US)
  Receive Date: 20221021
  Receipt Date: 20221129
  Transmission Date: 20230113
  Serious: No
  Sender: FDA-Public Use
  Company Number: US-ALEMBIC PHARMACUETICALS LIMITED-2022SCAL000454

PATIENT

DRUGS (1)
  1. BIMATOPROST [Suspect]
     Active Substance: BIMATOPROST
     Indication: Product used for unknown indication
     Dosage: 5 MILLILITER ONE DROP UPPER EYELASHES, ONCE A DAY
     Route: 065
     Dates: start: 20221004

REACTIONS (2)
  - Drug ineffective [Unknown]
  - Madarosis [Unknown]
